FAERS Safety Report 9132296 (Version 1)
Quarter: 2013Q1

REPORT INFORMATION
  Report Type: Spontaneous
  Country: NO (occurrence: NO)
  Receive Date: 20130208
  Receipt Date: 20130208
  Transmission Date: 20140127
  Serious: Yes (Other)
  Sender: FDA-Public Use
  Company Number: NO-PFIZER INC-2013038683

PATIENT
  Sex: Male

DRUGS (7)
  1. AZITROMAX [Suspect]
     Indication: BORRELIA INFECTION
     Dosage: 500 MG, 1X/DAY FOR 3 DAYS
     Route: 048
  2. CLARITHROMYCIN [Suspect]
     Indication: BORRELIA INFECTION
     Dosage: FREQUENCY: 500 MG X 2 FOR 2 WEEKS
     Route: 048
  3. METRONIDAZOLE [Suspect]
     Indication: BORRELIA INFECTION
     Dosage: UNK
     Route: 048
  4. PLAQUENIL [Suspect]
     Indication: BORRELIA INFECTION
     Dosage: 200 MG X 2 FOR 6 WEEKS
     Route: 048
  5. SELEXID [Concomitant]
     Indication: PYELONEPHRITIS
  6. AMOXICILLIN [Concomitant]
     Indication: BORRELIA INFECTION
  7. COPAXONE [Concomitant]
     Indication: MULTIPLE SCLEROSIS
     Route: 058

REACTIONS (3)
  - Off label use [Unknown]
  - Clostridium difficile colitis [Unknown]
  - Multiple sclerosis [Unknown]
